FAERS Safety Report 18429733 (Version 2)
Quarter: 2020Q4

REPORT INFORMATION
  Report Type: Report from Study
  Country: IN (occurrence: IN)
  Receive Date: 20201027
  Receipt Date: 20201103
  Transmission Date: 20210114
  Serious: Yes (Hospitalization)
  Sender: FDA-Public Use
  Company Number: IN-AMGEN-INDCT2020172119

PATIENT
  Age: 26 Year
  Sex: Female
  Weight: 40 kg

DRUGS (9)
  1. MAGNESIUM SULFATE. [Concomitant]
     Active Substance: MAGNESIUM SULFATE
     Indication: PROPHYLAXIS
     Dosage: 1 AMP/ON THE DAY OF DOSING
     Route: 042
     Dates: start: 20200905, end: 20201019
  2. PAN-D [Concomitant]
     Active Substance: DOMPERIDONE\PANTOPRAZOLE SODIUM
     Indication: GASTROOESOPHAGEAL REFLUX DISEASE
     Dosage: 40 MILLIGRAM/BBF
     Route: 048
     Dates: start: 20200923, end: 20200930
  3. PANITUMUMAB [Suspect]
     Active Substance: PANITUMUMAB
     Dosage: 6 MILLIGRAM/KILOGRAM (240MG), Q2WK
     Route: 042
     Dates: start: 20201019, end: 20201019
  4. SODIUM CHLORIDE 0.9% [Concomitant]
     Active Substance: SODIUM CHLORIDE
     Dosage: 100 MILLIGRAM/ON THE DAY OF DOSING
     Route: 042
     Dates: start: 20200905, end: 20201019
  5. ONDANSETRON [Concomitant]
     Active Substance: ONDANSETRON
     Indication: PROPHYLAXIS OF NAUSEA AND VOMITING
     Dosage: 16 MILLIGRAM/ON THE DAY OF DOSING
     Route: 042
     Dates: start: 20200905, end: 20201019
  6. EMESET [Concomitant]
     Active Substance: ONDANSETRON HYDROCHLORIDE
     Indication: PROPHYLAXIS OF NAUSEA AND VOMITING
     Dosage: 4 MILLIGRAM, TID
     Route: 048
     Dates: start: 20200906, end: 20200910
  7. PANITUMUMAB [Suspect]
     Active Substance: PANITUMUMAB
     Indication: RECTAL CANCER METASTATIC
     Dosage: 6 MILLIGRAM/KILOGRAM (240MG), Q2WK
     Route: 042
     Dates: start: 20200905, end: 20200905
  8. FLEXON [Concomitant]
     Active Substance: ACETAMINOPHEN\IBUPROFEN
     Indication: PAIN
     Dosage: 1 DOSAGE FORM/SOS
     Route: 048
     Dates: start: 20201007, end: 20201022
  9. EMESET [Concomitant]
     Active Substance: ONDANSETRON HYDROCHLORIDE
     Indication: NAUSEA
     Dosage: 8 MILLIGRAM, TID
     Route: 042
     Dates: start: 20201022, end: 20201024

REACTIONS (1)
  - Hospitalisation [Recovered/Resolved]

NARRATIVE: CASE EVENT DATE: 20201022
